FAERS Safety Report 6755833-3 (Version None)
Quarter: 2010Q2

REPORT INFORMATION
  Report Type: 
  Country: None (occurrence: None)
  Receive Date: 20100524
  Receipt Date: 20100305
  Transmission Date: 20101027
  Serious: Yes (Hospitalization)
  Sender: FDA-Public Use
  Company Number: 008276

PATIENT
  Sex: Male

DRUGS (5)
  1. CIMZIA [Suspect]
     Indication: CROHN'S DISEASE
     Dosage: (400 MG SUBCUTANEOUS)
     Route: 058
     Dates: start: 20091001
  2. PENTASA [Concomitant]
  3. IMURAN [Concomitant]
  4. AZATHIOPRINE [Concomitant]
  5. ACTONEL [Concomitant]

REACTIONS (1)
  - GASTROINTESTINAL OBSTRUCTION [None]
